FAERS Safety Report 9153522 (Version 1)
Quarter: 2013Q1

REPORT INFORMATION
  Report Type: Spontaneous
  Country: US (occurrence: None)
  Receive Date: 20130204
  Receipt Date: 20130204
  Transmission Date: 20140127
  Serious: Yes (Other)
  Sender: FDA-Public Use
  Company Number: DSM-2013-00118

PATIENT
  Age: 74 Year
  Sex: Male

DRUGS (5)
  1. BIVIS [Suspect]
     Indication: HYPERTENSION
     Route: 048
     Dates: start: 20111226
  2. BIVIS [Suspect]
     Indication: PRODUCT USED FOR UNKNOWN INDICATION
     Route: 048
     Dates: start: 20111226
  3. BIVIS [Suspect]
     Route: 048
     Dates: start: 20111226
  4. ENALAPRIL MALEATE (ENALAPRIL MALEATE) [Suspect]
     Dates: start: 20111226, end: 20121215
  5. XATRAL [Suspect]

REACTIONS (1)
  - Syncope [None]
